FAERS Safety Report 11758066 (Version 4)
Quarter: 2016Q2

REPORT INFORMATION
  Report Type: Spontaneous
  Country: US (occurrence: US)
  Receive Date: 20151120
  Receipt Date: 20160609
  Transmission Date: 20160815
  Serious: Yes (Hospitalization, Other)
  Sender: FDA-Public Use
  Company Number: US-ASTRAZENECA-2015SF11325

PATIENT
  Age: 32160 Day
  Sex: Male
  Weight: 71.2 kg

DRUGS (20)
  1. SYMBICORT [Suspect]
     Active Substance: BUDESONIDE\FORMOTEROL FUMARATE DIHYDRATE
     Indication: ASTHMA
     Dosage: 160/4.5 MCG ONE PUFF IN THE MORNING AND ONE PUFF IN THE EVENING
     Route: 055
     Dates: start: 20150727, end: 201509
  2. LYRICA [Concomitant]
     Active Substance: PREGABALIN
  3. WATER PILL [Concomitant]
     Active Substance: UNSPECIFIED INGREDIENT
  4. SYMBICORT [Suspect]
     Active Substance: BUDESONIDE\FORMOTEROL FUMARATE DIHYDRATE
     Indication: ASTHMA
     Dosage: TWO TIMES A DAY
     Route: 055
     Dates: start: 201505
  5. SYMBICORT [Suspect]
     Active Substance: BUDESONIDE\FORMOTEROL FUMARATE DIHYDRATE
     Indication: EMPHYSEMA
     Dosage: 160/4.5 MCG ONE PUFF IN THE MORNING AND ONE PUFF IN THE EVENING
     Route: 055
     Dates: start: 201510
  6. VICODIN [Concomitant]
     Active Substance: ACETAMINOPHEN\HYDROCODONE BITARTRATE
     Indication: MUSCULOSKELETAL PAIN
     Route: 048
     Dates: start: 2004
  7. DULERA [Concomitant]
     Active Substance: FORMOTEROL FUMARATE DIHYDRATE\MOMETASONE FUROATE
     Dosage: TWICE DAILY
  8. SYMBICORT [Suspect]
     Active Substance: BUDESONIDE\FORMOTEROL FUMARATE DIHYDRATE
     Indication: EMPHYSEMA
     Dosage: TWO TIMES A DAY
     Route: 055
     Dates: start: 201505
  9. SYMBICORT [Suspect]
     Active Substance: BUDESONIDE\FORMOTEROL FUMARATE DIHYDRATE
     Indication: CHRONIC OBSTRUCTIVE PULMONARY DISEASE
     Dosage: 160/4.5 MCG ONE PUFF IN THE MORNING AND ONE PUFF IN THE EVENING
     Route: 055
     Dates: start: 201510
  10. SYMBICORT [Suspect]
     Active Substance: BUDESONIDE\FORMOTEROL FUMARATE DIHYDRATE
     Indication: BRONCHITIS
     Dosage: 160/4.5 MCG ONE PUFF IN THE MORNING AND ONE PUFF IN THE EVENING
     Route: 055
     Dates: start: 20150727, end: 201509
  11. VICODIN [Concomitant]
     Active Substance: ACETAMINOPHEN\HYDROCODONE BITARTRATE
     Indication: NECK PAIN
     Route: 048
     Dates: start: 2004
  12. PREDNISONE. [Concomitant]
     Active Substance: PREDNISONE
  13. PROSTATE PILL [Concomitant]
  14. SYMBICORT [Suspect]
     Active Substance: BUDESONIDE\FORMOTEROL FUMARATE DIHYDRATE
     Indication: BRONCHITIS
     Dosage: TWO TIMES A DAY
     Route: 055
     Dates: start: 201505
  15. SYMBICORT [Suspect]
     Active Substance: BUDESONIDE\FORMOTEROL FUMARATE DIHYDRATE
     Indication: CHRONIC OBSTRUCTIVE PULMONARY DISEASE
     Dosage: TWO TIMES A DAY
     Route: 055
     Dates: start: 201505
  16. SYMBICORT [Suspect]
     Active Substance: BUDESONIDE\FORMOTEROL FUMARATE DIHYDRATE
     Indication: EMPHYSEMA
     Dosage: 160/4.5 MCG ONE PUFF IN THE MORNING AND ONE PUFF IN THE EVENING
     Route: 055
     Dates: start: 20150727, end: 201509
  17. SYMBICORT [Suspect]
     Active Substance: BUDESONIDE\FORMOTEROL FUMARATE DIHYDRATE
     Indication: CHRONIC OBSTRUCTIVE PULMONARY DISEASE
     Dosage: 160/4.5 MCG ONE PUFF IN THE MORNING AND ONE PUFF IN THE EVENING
     Route: 055
     Dates: start: 20150727, end: 201509
  18. SYMBICORT [Suspect]
     Active Substance: BUDESONIDE\FORMOTEROL FUMARATE DIHYDRATE
     Indication: ASTHMA
     Dosage: 160/4.5 MCG ONE PUFF IN THE MORNING AND ONE PUFF IN THE EVENING
     Route: 055
     Dates: start: 201510
  19. SYMBICORT [Suspect]
     Active Substance: BUDESONIDE\FORMOTEROL FUMARATE DIHYDRATE
     Indication: BRONCHITIS
     Dosage: 160/4.5 MCG ONE PUFF IN THE MORNING AND ONE PUFF IN THE EVENING
     Route: 055
     Dates: start: 201510
  20. VICODIN [Concomitant]
     Active Substance: ACETAMINOPHEN\HYDROCODONE BITARTRATE
     Indication: BACK PAIN
     Route: 048
     Dates: start: 2004

REACTIONS (15)
  - Supraventricular tachycardia [Unknown]
  - Asbestosis [Unknown]
  - Blood pressure decreased [Unknown]
  - Off label use [Unknown]
  - Pneumonia aspiration [Unknown]
  - Oral mucosal blistering [Unknown]
  - Stomatitis [Unknown]
  - Ageusia [Unknown]
  - Loss of consciousness [Unknown]
  - Oral mucosal exfoliation [Not Recovered/Not Resolved]
  - Oral candidiasis [Unknown]
  - Heart rate increased [Unknown]
  - Pneumonia [Unknown]
  - Arrhythmia [Unknown]
  - Eye colour change [Unknown]

NARRATIVE: CASE EVENT DATE: 20150623
